FAERS Safety Report 11193854 (Version 1)
Quarter: 2015Q2

REPORT INFORMATION
  Report Type: Spontaneous
  Country: US (occurrence: US)
  Receive Date: 20150616
  Receipt Date: 20150616
  Transmission Date: 20150821
  Serious: No
  Sender: FDA-Public Use
  Company Number: US-TAKEDA-2014MPI002455

PATIENT
  Sex: Female
  Weight: 57.6 kg

DRUGS (1)
  1. VELCADE [Suspect]
     Active Substance: BORTEZOMIB
     Indication: PLASMA CELL MYELOMA
     Dosage: 2 MG,ON DAYS 1, 4, 8 AND 11 EVERY 3
     Route: 058
     Dates: start: 20140805

REACTIONS (3)
  - Rash generalised [Unknown]
  - Rash [Unknown]
  - Injection site reaction [Unknown]
